FAERS Safety Report 13509376 (Version 4)
Quarter: 2019Q2

REPORT INFORMATION
  Report Type: Spontaneous
  Country: US (occurrence: US)
  Receive Date: 20170503
  Receipt Date: 20190506
  Transmission Date: 20190711
  Serious: No
  Sender: FDA-Public Use
  Company Number: US-SA-2017SA020860

PATIENT
  Age: 85 Year
  Sex: Female

DRUGS (6)
  1. PRALUENT [Suspect]
     Active Substance: ALIROCUMAB
     Indication: HYPERLIPIDAEMIA
  2. ZETIA [Concomitant]
     Active Substance: EZETIMIBE
     Dosage: UNK UNK,UNK
     Route: 065
  3. GABAPENTIN. [Concomitant]
     Active Substance: GABAPENTIN
     Dosage: UNK UNK,UNK
     Route: 065
  4. VALSARTAN. [Concomitant]
     Active Substance: VALSARTAN
     Dosage: UNK UNK,UNK
     Route: 065
  5. SIMVASTATIN. [Concomitant]
     Active Substance: SIMVASTATIN
     Dosage: UNK UNK,UNK
     Route: 065
  6. PRALUENT [Suspect]
     Active Substance: ALIROCUMAB
     Indication: TYPE IIA HYPERLIPIDAEMIA
     Dosage: 75 MG,QOW
     Route: 058
     Dates: start: 20160613

REACTIONS (2)
  - Cough [Not Recovered/Not Resolved]
  - Throat irritation [Unknown]
